FAERS Safety Report 23721381 (Version 2)
Quarter: 2024Q2

REPORT INFORMATION
  Report Type: Report from Study
  Country: JP (occurrence: JP)
  Receive Date: 20240409
  Receipt Date: 20240627
  Transmission Date: 20240715
  Serious: Yes (Death, Hospitalization)
  Sender: FDA-Public Use
  Company Number: JP-GILEAD-2022-0584168

PATIENT
  Age: 5 Decade
  Sex: Male

DRUGS (5)
  1. EMTRICITABINE\TENOFOVIR [Suspect]
     Active Substance: EMTRICITABINE\TENOFOVIR
     Indication: HIV infection
     Dosage: 1 DOSAGE FORM, QD
     Route: 048
     Dates: start: 20180829, end: 20191218
  2. EMTRICITABINE\TENOFOVIR [Suspect]
     Active Substance: EMTRICITABINE\TENOFOVIR
     Dosage: 1 DOSAGE FORM, QD
     Route: 048
     Dates: start: 20200227, end: 20231009
  3. PIFELTRO [Concomitant]
     Active Substance: DORAVIRINE
     Indication: HIV infection
     Dosage: 1 DOSAGE FORM
     Dates: start: 20200227, end: 20231009
  4. REBAMIPIDE [Concomitant]
     Active Substance: REBAMIPIDE
     Indication: Nausea
     Dosage: UNK
     Dates: start: 20200825, end: 20231009
  5. REBAMIPIDE [Concomitant]
     Active Substance: REBAMIPIDE
     Indication: Abdominal discomfort

REACTIONS (5)
  - Completed suicide [Fatal]
  - Seizure [Recovering/Resolving]
  - Conversion disorder [Recovering/Resolving]
  - Diet refusal [Recovering/Resolving]
  - Physical deconditioning [Recovering/Resolving]

NARRATIVE: CASE EVENT DATE: 20200201
